FAERS Safety Report 17253854 (Version 1)
Quarter: 2020Q1

REPORT INFORMATION
  Report Type: Spontaneous
  Country: US (occurrence: US)
  Receive Date: 20200109
  Receipt Date: 20200109
  Transmission Date: 20200409
  Serious: Yes (Hospitalization, Other)
  Sender: FDA-Public Use
  Company Number: US-AMNEAL PHARMACEUTICALS-2019-AMRX-02375

PATIENT
  Age: 42 Year
  Sex: Female
  Weight: 62.59 kg

DRUGS (4)
  1. ELAGOLIX [Suspect]
     Active Substance: ELAGOLIX
     Indication: UTERINE LEIOMYOMA
     Dosage: 2 TABLETS, QD
     Route: 048
     Dates: start: 20170911, end: 20180227
  2. FERROUS SULFATE. [Concomitant]
     Active Substance: FERROUS SULFATE
     Indication: IRON DEFICIENCY ANAEMIA
     Dosage: 325 MILLIGRAM, QD
     Route: 048
     Dates: start: 20170406
  3. IBUPROFEN [IBUPROFEN SODIUM] [Concomitant]
     Indication: DYSMENORRHOEA
     Dosage: 800 MILLIGRAM, AS REQUIRED
     Route: 048
     Dates: start: 2012
  4. ACTIVELLA [Suspect]
     Active Substance: ESTRADIOL\NORETHINDRONE ACETATE
     Indication: UTERINE LEIOMYOMA
     Dosage: 2 TABLETS, QD
     Route: 048
     Dates: start: 20170911, end: 20180227

REACTIONS (2)
  - Menorrhagia [Recovered/Resolved]
  - Uterine haemorrhage [Recovered/Resolved]

NARRATIVE: CASE EVENT DATE: 20180430
